FAERS Safety Report 6418923-0 (Version None)
Quarter: 2009Q4

REPORT INFORMATION
  Report Type: 
  Country: None (occurrence: None)
  Receive Date: 20091029
  Receipt Date: 20091016
  Transmission Date: 20100525
  Serious: Yes (Other)
  Sender: FDA-Public Use
  Company Number: GB-RANBAXY-2009RR-28672

PATIENT
  Sex: Female

DRUGS (1)
  1. ISOTRETINOIN [Suspect]
     Dosage: UNK
     Route: 065
     Dates: end: 20070201

REACTIONS (3)
  - ABORTION [None]
  - DRUG EXPOSURE BEFORE PREGNANCY [None]
  - NEONATAL DISORDER [None]
